FAERS Safety Report 5247652-4 (Version None)
Quarter: 2007Q1

REPORT INFORMATION
  Report Type: 
  Country: None (occurrence: None)
  Receive Date: 20070222
  Receipt Date: 20070209
  Transmission Date: 20070707
  Serious: Yes (Hospitalization)
  Sender: FDA-Public Use
  Company Number: FSC_0062_2007

PATIENT
  Age: 82 Year
  Sex: Female

DRUGS (11)
  1. ISOPTIN [Suspect]
     Indication: ATRIAL FIBRILLATION
     Dosage: 360 MG Q DAY PO
     Route: 048
  2. DUROFERON [Suspect]
     Dosage: 100 MG PO
     Route: 048
  3. CREON [Concomitant]
  4. ZOPIKLON [Concomitant]
  5. ACETAMINOPHEN [Concomitant]
  6. CYANOCOBALAMIN [Concomitant]
  7. PAPAVERINE HYDROCHLORIDE [Concomitant]
  8. ISOSORBIDE MONONITRATE [Concomitant]
  9. TRAMADOL HCL [Concomitant]
  10. LEKOVIT CA [Concomitant]
  11. ESOMEPRAZOLE MAGNESIUM [Concomitant]

REACTIONS (3)
  - CONSTIPATION [None]
  - DIVERTICULUM [None]
  - GASTROINTESTINAL HAEMORRHAGE [None]
